FAERS Safety Report 11567721 (Version 1)
Quarter: 2015Q3

REPORT INFORMATION
  Report Type: Spontaneous
  Country: US (occurrence: US)
  Receive Date: 20150916
  Receipt Date: 20150916
  Transmission Date: 20151125
  Serious: No
  Sender: FDA-Public Use
  Company Number: US-ELI_LILLY_AND_COMPANY-US200907006541

PATIENT
  Sex: Female

DRUGS (3)
  1. ANALGESICS [Concomitant]
     Active Substance: UNSPECIFIED INGREDIENT
  2. DIURETICS [Concomitant]
     Active Substance: UNSPECIFIED INGREDIENT
  3. FORTEO [Suspect]
     Active Substance: TERIPARATIDE

REACTIONS (5)
  - Nausea [Recovered/Resolved]
  - Injection site erythema [Recovered/Resolved]
  - Gastrointestinal disorder [Unknown]
  - Muscle spasms [Recovered/Resolved]
  - Oedema [Not Recovered/Not Resolved]
